FAERS Safety Report 13195334 (Version 1)
Quarter: 2017Q1

REPORT INFORMATION
  Report Type: Spontaneous
  Country: US (occurrence: US)
  Receive Date: 20170207
  Receipt Date: 20170207
  Transmission Date: 20170428
  Serious: Yes (Other)
  Sender: FDA-Public Use
  Company Number: None

PATIENT
  Age: 87 Year
  Sex: Male
  Weight: 73.09 kg

DRUGS (1)
  1. GLASSIA [Suspect]
     Active Substance: .ALPHA.1-PROTEINASE INHIBITOR HUMAN
     Indication: BRAIN NEOPLASM MALIGNANT
     Route: 042
     Dates: start: 20170201

REACTIONS (3)
  - Condition aggravated [None]
  - Lethargy [None]
  - Cough [None]

NARRATIVE: CASE EVENT DATE: 20170201
